FAERS Safety Report 6343029-9 (Version None)
Quarter: 2009Q3

REPORT INFORMATION
  Report Type: 
  Country: None (occurrence: None)
  Receive Date: 20090908
  Receipt Date: 20090904
  Transmission Date: 20100115
  Serious: Yes (Hospitalization)
  Sender: FDA-Public Use
  Company Number: US-BRISTOL-MYERS SQUIBB COMPANY-14768394

PATIENT
  Sex: Female

DRUGS (2)
  1. ARIPIPRAZOLE [Suspect]
     Indication: PSYCHOTIC DISORDER
  2. ZYPREXA [Suspect]
     Indication: PSYCHOTIC DISORDER
     Dosage: TABS FORM

REACTIONS (2)
  - BLOOD GLUCOSE INCREASED [None]
  - PSYCHOTIC DISORDER [None]
